FAERS Safety Report 6447820-X (Version None)
Quarter: 2009Q4

REPORT INFORMATION
  Report Type: 
  Country: None (occurrence: None)
  Receive Date: 20091120
  Receipt Date: 20091029
  Transmission Date: 20100525
  Serious: No
  Sender: FDA-Public Use
  Company Number: A0805812A

PATIENT
  Age: 72 Year
  Sex: Male

DRUGS (2)
  1. VERAMYST [Suspect]
     Indication: ILL-DEFINED DISORDER
     Dosage: 1SPR PER DAY
     Route: 045
     Dates: start: 20090803, end: 20090820
  2. NO CONCURRENT MEDICATION [Concomitant]

REACTIONS (2)
  - DRUG INEFFECTIVE [None]
  - PRODUCT QUALITY ISSUE [None]
